FAERS Safety Report 5474667-3 (Version None)
Quarter: 2007Q3

REPORT INFORMATION
  Report Type: 
  Country: None (occurrence: None)
  Receive Date: 20070831
  Receipt Date: 20070223
  Transmission Date: 20080115
  Serious: Yes (Hospitalization)
  Sender: FDA-Public Use
  Company Number: 260039

PATIENT
  Age: 72 Year
  Sex: Male
  Weight: 92.1 kg

DRUGS (2)
  1. NOVOLIN N [Suspect]
     Dosage: 30 IU, BID, SUBCUTANEOUS
     Route: 058
     Dates: start: 19870101
  2. NOVOLIN R [Concomitant]

REACTIONS (1)
  - HYPERSENSITIVITY [None]
